FAERS Safety Report 4824117-2 (Version None)
Quarter: 2005Q4

REPORT INFORMATION
  Report Type: 
  Country: None (occurrence: None)
  Receive Date: 20051109
  Receipt Date: 20051003
  Transmission Date: 20060501
  Serious: Yes (Other)
  Sender: FDA-Public Use
  Company Number: US-AMGEN-US153335

PATIENT
  Age: 50 Year
  Sex: Female

DRUGS (5)
  1. ENBREL [Suspect]
     Indication: RHEUMATOID ARTHRITIS
     Route: 058
     Dates: start: 19991001, end: 20050208
  2. SULFASALAZINE [Concomitant]
  3. HYDROXYCHLOROQUINE SULFATE [Concomitant]
  4. METHOTREXATE [Concomitant]
  5. PREDNISONE [Concomitant]

REACTIONS (5)
  - CONDITION AGGRAVATED [None]
  - INFLAMMATION [None]
  - PNEUMONITIS [None]
  - PULMONARY GRANULOMA [None]
  - RHEUMATOID ARTHRITIS [None]
